FAERS Safety Report 20015509 (Version 1)
Quarter: 2021Q4

REPORT INFORMATION
  Report Type: Spontaneous
  Country: US (occurrence: None)
  Receive Date: 20211029
  Receipt Date: 20211029
  Transmission Date: 20220303
  Serious: No
  Sender: FDA-Public Use
  Company Number: None

PATIENT
  Sex: Female

DRUGS (2)
  1. DEVICE [Suspect]
     Active Substance: DEVICE
     Indication: Pulmonary arterial hypertension
     Dosage: OTHER QUANTITY : REMODULIN28NG/KG/M;?OTHER FREQUENCY : CONRINUOUS;?
     Route: 058
     Dates: start: 20210416
  2. REMODULIN [Suspect]
     Active Substance: TREPROSTINIL
     Indication: Pulmonary arterial hypertension
     Route: 048
     Dates: start: 20210416

REACTIONS (3)
  - Dizziness [None]
  - Nonspecific reaction [None]
  - Catheter site extravasation [None]
